FAERS Safety Report 20442414 (Version 1)
Quarter: 2022Q1

REPORT INFORMATION
  Report Type: Spontaneous
  Country: US (occurrence: US)
  Receive Date: 20220208
  Receipt Date: 20220208
  Transmission Date: 20220423
  Serious: No
  Sender: FDA-Public Use
  Company Number: US-ALLERGAN-2104925US

PATIENT
  Age: 58 Year
  Sex: Male

DRUGS (4)
  1. VIIBRYD [Suspect]
     Active Substance: VILAZODONE HYDROCHLORIDE
     Indication: Anxiety
     Dosage: 20 MG, QD
     Route: 048
     Dates: start: 20210112, end: 202101
  2. VIIBRYD [Suspect]
     Active Substance: VILAZODONE HYDROCHLORIDE
     Indication: Obsessive-compulsive disorder
     Dosage: 10 MG, QD
     Route: 048
     Dates: start: 20201124, end: 20210111
  3. METFORMIN [Concomitant]
     Active Substance: METFORMIN HYDROCHLORIDE
     Indication: Type 2 diabetes mellitus
     Dosage: UNK
  4. LOSARTAN [Concomitant]
     Active Substance: LOSARTAN
     Indication: Hypertension
     Dosage: UNK

REACTIONS (6)
  - Pollakiuria [Recovered/Resolved]
  - Bladder pain [Recovered/Resolved]
  - Off label use [Unknown]
  - Loss of employment [Unknown]
  - Therapeutic response unexpected [Unknown]
  - Drug ineffective for unapproved indication [Unknown]

NARRATIVE: CASE EVENT DATE: 20210101
